FAERS Safety Report 24043776 (Version 2)
Quarter: 2024Q3

REPORT INFORMATION
  Report Type: Spontaneous
  Country: GB (occurrence: GB)
  Receive Date: 20240703
  Receipt Date: 20240710
  Transmission Date: 20241016
  Serious: Yes (Death)
  Sender: EMD SERONO INC
  Company Number: GB-Merck Healthcare KGaA-2024035779

PATIENT
  Sex: Male

DRUGS (1)
  1. REBIF [Suspect]
     Active Substance: INTERFERON BETA-1A
     Indication: Multiple sclerosis
     Dosage: FORMULATION: CARTRIDGES.
     Route: 058
     Dates: start: 20070608

REACTIONS (1)
  - Death [Fatal]
